FAERS Safety Report 19775125 (Version 1)
Quarter: 2021Q3

REPORT INFORMATION
  Report Type: Spontaneous
  Country: NL (occurrence: NL)
  Receive Date: 20210901
  Receipt Date: 20210901
  Transmission Date: 20211014
  Serious: Yes (Other)
  Sender: FDA-Public Use
  Company Number: NL-TEVA-2021-NL-1947352

PATIENT
  Sex: Male
  Weight: 89.8 kg

DRUGS (2)
  1. PARACETAMOL CAPSULE 500MG / BRAND NAME NOT SPECIFIED [Concomitant]
     Dosage: 500 MG (MILLIGRAM); THERAPY START AND END DATE: ASKU
  2. OXYCODON TABLET  10MG / BRAND NAME NOT SPECIFIED [Suspect]
     Active Substance: OXYCODONE
     Indication: PAIN
     Dosage: COMBINATION OF 10MG AND 5MG, 120MG IN TOTAL, 3 DAYS IN A ROW.; THERAPY END DATE: ASKU
     Dates: start: 2018

REACTIONS (2)
  - Hallucination, visual [Recovering/Resolving]
  - Hallucination, auditory [Recovering/Resolving]
